FAERS Safety Report 8565182-9 (Version None)
Quarter: 2012Q3

REPORT INFORMATION
  Report Type: 
  Country: None (occurrence: None)
  Receive Date: 20120803
  Receipt Date: 20120726
  Transmission Date: 20120928
  Serious: Yes (Hospitalization, Other)
  Sender: FDA-Public Use
  Company Number: US-ROCHE-1093199

PATIENT
  Sex: Male

DRUGS (1)
  1. PEGINTERFERON ALFA-2A [Suspect]
     Indication: HEPATITIS
     Dates: start: 19980101

REACTIONS (5)
  - LIVER TRANSPLANT [None]
  - ASTHMA [None]
  - HEPATIC NEOPLASM MALIGNANT [None]
  - VIRAL LOAD INCREASED [None]
  - COUGH [None]
